FAERS Safety Report 20909935 (Version 1)
Quarter: 2022Q2

REPORT INFORMATION
  Report Type: Report from Study
  Country: HU (occurrence: HU)
  Receive Date: 20220603
  Receipt Date: 20220603
  Transmission Date: 20220721
  Serious: Yes (Life-Threatening, Other)
  Sender: FDA-Public Use
  Company Number: HU-SUN PHARMACEUTICAL INDUSTRIES LTD-2022R1-339265

PATIENT
  Age: 1 Day
  Weight: 1.9 kg

DRUGS (3)
  1. PROPAFENONE [Suspect]
     Active Substance: PROPAFENONE
     Indication: Supraventricular tachycardia
     Dosage: UNK (8 UG/KG/MIN)
     Route: 048
  2. PROPAFENONE [Suspect]
     Active Substance: PROPAFENONE
     Dosage: UNK (17.3 MG/KG OVER 38 H)
     Route: 048
  3. PROPAFENONE [Suspect]
     Active Substance: PROPAFENONE
     Indication: Supraventricular tachycardia
     Dosage: UNK (2 MG/KG OVER 2 H)
     Route: 042

REACTIONS (3)
  - Electrocardiogram QRS complex prolonged [Unknown]
  - Multiple organ dysfunction syndrome [Unknown]
  - Arrhythmia [Unknown]
